FAERS Safety Report 5688962-6 (Version None)
Quarter: 2008Q1

REPORT INFORMATION
  Report Type: 
  Country: None (occurrence: None)
  Receive Date: 20080331
  Receipt Date: 20080326
  Transmission Date: 20080703
  Serious: Yes (Life-Threatening, Hospitalization)
  Sender: FDA-Public Use
  Company Number: DE-BAYER-200815505GPV

PATIENT
  Age: 62 Year
  Sex: Female
  Weight: 64 kg

DRUGS (1)
  1. MAGNEVIST [Suspect]
     Indication: SCAN WITH CONTRAST
     Route: 065

REACTIONS (2)
  - APNOEA [None]
  - CYANOSIS [None]
